FAERS Safety Report 5325348-8 (Version None)
Quarter: 2007Q2

REPORT INFORMATION
  Report Type: 
  Country: None (occurrence: None)
  Receive Date: 20070515
  Receipt Date: 20070510
  Transmission Date: 20071010
  Serious: Yes (Other)
  Sender: FDA-Public Use
  Company Number: BR-ASTRAZENECA-2007UW11233

PATIENT
  Age: 22 Year
  Sex: Female
  Weight: 52 kg

DRUGS (1)
  1. ZOLADEX [Suspect]
     Indication: ENDOMETRIOSIS
     Route: 058
     Dates: start: 20061201

REACTIONS (16)
  - AGITATION [None]
  - ALOPECIA [None]
  - ANAL HAEMORRHAGE [None]
  - ANOREXIA [None]
  - BONE PAIN [None]
  - DYSPAREUNIA [None]
  - FATIGUE [None]
  - HEADACHE [None]
  - HOT FLUSH [None]
  - INSOMNIA [None]
  - LOSS OF LIBIDO [None]
  - PYREXIA [None]
  - STRESS [None]
  - TOOTHACHE [None]
  - VULVOVAGINAL DRYNESS [None]
  - WEIGHT DECREASED [None]
